FAERS Safety Report 20510349 (Version 3)
Quarter: 2022Q2

REPORT INFORMATION
  Report Type: Spontaneous
  Country: DE (occurrence: DE)
  Receive Date: 20220224
  Receipt Date: 20220513
  Transmission Date: 20220721
  Serious: Yes (Hospitalization, Other)
  Sender: FDA-Public Use
  Company Number: DE-ROCHE-2318759

PATIENT
  Age: 62 Year
  Sex: Male
  Weight: 72 kg

DRUGS (23)
  1. IBRUTINIB [Suspect]
     Active Substance: IBRUTINIB
     Indication: Product used for unknown indication
     Route: 048
  2. CISPLATIN\CYTARABINE\DEXAMETHASONE [Suspect]
     Active Substance: CISPLATIN\CYTARABINE\DEXAMETHASONE
     Indication: Mantle cell lymphoma
     Dosage: UNKNOWN FREQ. (IN COMBINATION WITH RITUXIMAB)
     Route: 065
     Dates: start: 201109, end: 201112
  3. BEAM [Suspect]
     Active Substance: SODIUM FLUORIDE
     Indication: Mantle cell lymphoma
     Dosage: UNKNOWN FREQ. (IN COMBINATION WITH RITUXIMAB)
     Route: 065
     Dates: start: 201202, end: 201202
  4. COPEGUS [Suspect]
     Active Substance: RIBAVIRIN
     Indication: Hepatitis E
     Dosage: 1000 MG, UNKNOWN FREQ. (NEXT DOSE WAS RECEIVED ON /DEC/2019 AND STOPPED ON /AUG/2021)
     Route: 065
     Dates: start: 2019, end: 201908
  5. COPEGUS [Suspect]
     Active Substance: RIBAVIRIN
     Route: 065
     Dates: start: 20190701, end: 20190920
  6. COPEGUS [Suspect]
     Active Substance: RIBAVIRIN
     Route: 048
     Dates: start: 20191223, end: 202008
  7. BENDAMUSTINE [Suspect]
     Active Substance: BENDAMUSTINE
     Indication: Non-Hodgkin^s lymphoma recurrent
     Route: 065
     Dates: start: 20180122, end: 201810
  8. VINCRISTINE SULFATE [Suspect]
     Active Substance: VINCRISTINE SULFATE
     Indication: Mantle cell lymphoma
     Route: 065
     Dates: start: 201109, end: 201112
  9. DOXORUBICIN [Suspect]
     Active Substance: DOXORUBICIN
     Indication: Mantle cell lymphoma
     Route: 065
     Dates: start: 201109, end: 201112
  10. CYCLOPHOSPHAMIDE [Suspect]
     Active Substance: CYCLOPHOSPHAMIDE
     Indication: Mantle cell lymphoma
     Route: 065
     Dates: start: 201109, end: 201110
  11. PREDNISONE [Suspect]
     Active Substance: PREDNISONE
     Indication: Mantle cell lymphoma
     Route: 065
     Dates: start: 201109, end: 201110
  12. MABTHERA [Suspect]
     Active Substance: RITUXIMAB
     Indication: Non-Hodgkin^s lymphoma
     Dosage: JUN/2018, JUL/2018, SEP/2018,NOV/2018 AND JAN/2019 WITH CHOP,1XW
     Route: 042
     Dates: start: 201109, end: 201112
  13. MABTHERA [Suspect]
     Active Substance: RITUXIMAB
     Route: 042
     Dates: start: 201201, end: 201201
  14. MABTHERA [Suspect]
     Active Substance: RITUXIMAB
     Route: 042
     Dates: start: 201202, end: 201202
  15. MABTHERA [Suspect]
     Active Substance: RITUXIMAB
     Route: 042
     Dates: start: 20180122, end: 201810
  16. MABTHERA [Suspect]
     Active Substance: RITUXIMAB
     Route: 042
     Dates: start: 20190122, end: 20190123
  17. SELENIUM [Concomitant]
     Active Substance: SELENIUM
     Indication: Product used for unknown indication
     Dosage: UNK UNK, UNKNOWN FREQ.
     Route: 065
  18. LEVOTHYROXINE [Concomitant]
     Active Substance: LEVOTHYROXINE
     Indication: Product used for unknown indication
     Dosage: 50 UG, ONCE DAILY (1-0-0)
     Route: 065
  19. ZINC [Concomitant]
     Active Substance: ZINC
     Indication: Product used for unknown indication
     Dosage: UNK UNK, UNKNOWN FREQ.
     Route: 065
  20. PANCRELIPASE [Concomitant]
     Active Substance: PANCRELIPASE
     Indication: Product used for unknown indication
     Dosage: UNK UNK, UNKNOWN FREQ.
     Route: 065
  21. DIETARY SUPPLEMENT\HERBALS\MILK THISTLE [Concomitant]
     Active Substance: DIETARY SUPPLEMENT\HERBALS\MILK THISTLE
     Indication: Liver disorder
     Dosage: UNK UNK, UNKNOWN FREQ.
     Route: 065
  22. FLECAINIDE [Concomitant]
     Active Substance: FLECAINIDE
     Indication: Atrial fibrillation
     Dosage: UNK UNK, UNKNOWN FREQ.
     Route: 065
  23. BISOPROLOL [Concomitant]
     Active Substance: BISOPROLOL
     Indication: Product used for unknown indication
     Dosage: 1.25 MG, TWICE DAILY (1-0-1)
     Route: 065

REACTIONS (54)
  - Basal cell carcinoma [Recovered/Resolved]
  - Diarrhoea [Unknown]
  - Cardiac hypertrophy [Unknown]
  - Pneumonia [Unknown]
  - Osteochondrosis [Unknown]
  - Carotid arteriosclerosis [Unknown]
  - Hepatitis E [Not Recovered/Not Resolved]
  - Acute kidney injury [Recovered/Resolved with Sequelae]
  - Mantle cell lymphoma [Not Recovered/Not Resolved]
  - Hypogammaglobulinaemia [Not Recovered/Not Resolved]
  - Lentigo maligna [Recovered/Resolved]
  - Type 2 diabetes mellitus [Not Recovered/Not Resolved]
  - Mitral valve incompetence [Unknown]
  - Neuropathy peripheral [Unknown]
  - Aortic valve incompetence [Unknown]
  - Pancytopenia [Unknown]
  - Lymphoma [Not Recovered/Not Resolved]
  - Transient ischaemic attack [Recovered/Resolved]
  - Hyperuricaemia [Unknown]
  - Renal failure [Recovering/Resolving]
  - Influenza [Recovered/Resolved]
  - Febrile neutropenia [Unknown]
  - Diabetic neuropathy [Not Recovered/Not Resolved]
  - Goitre [Not Recovered/Not Resolved]
  - Sleep disorder [Not Recovered/Not Resolved]
  - Seasonal allergy [Unknown]
  - Gastrointestinal disorder [Not Recovered/Not Resolved]
  - Arthropathy [Not Recovered/Not Resolved]
  - Hernia [Not Recovered/Not Resolved]
  - Prostatomegaly [Unknown]
  - Lymphopenia [Not Recovered/Not Resolved]
  - Dyspnoea exertional [Not Recovered/Not Resolved]
  - Conjunctivitis [Recovered/Resolved]
  - Pain in extremity [Not Recovered/Not Resolved]
  - Hypertension [Not Recovered/Not Resolved]
  - Abdominal lymphadenopathy [Recovering/Resolving]
  - Dysplastic naevus [Recovered/Resolved]
  - Asthenia [Not Recovered/Not Resolved]
  - Lipid metabolism disorder [Unknown]
  - Herpes simplex [Recovering/Resolving]
  - Fatigue [Unknown]
  - Spinal pain [Unknown]
  - Musculoskeletal disorder [Not Recovered/Not Resolved]
  - Spinal column injury [Not Recovered/Not Resolved]
  - Spinal osteoarthritis [Unknown]
  - Prostatitis [Unknown]
  - Road traffic accident [Unknown]
  - Intervertebral disc protrusion [Unknown]
  - Genital herpes [Unknown]
  - Headache [Not Recovered/Not Resolved]
  - Nasal polyps [Unknown]
  - Adjustment disorder with depressed mood [Unknown]
  - Oral candidiasis [Recovered/Resolved]
  - Off label use [Unknown]

NARRATIVE: CASE EVENT DATE: 20120101
